FAERS Safety Report 14593176 (Version 1)
Quarter: 2018Q1

REPORT INFORMATION
  Report Type: Spontaneous
  Country: JP (occurrence: JP)
  Receive Date: 20180302
  Receipt Date: 20180302
  Transmission Date: 20180509
  Serious: Yes (Other)
  Sender: FDA-Public Use
  Company Number: JP-ALLERGAN-1810213US

PATIENT
  Age: 7 Decade
  Sex: Male

DRUGS (1)
  1. BOTOX [Suspect]
     Active Substance: ONABOTULINUMTOXINA
     Indication: FACIAL SPASM
     Dosage: 1-2 UNITS, SINGLE
     Route: 030
     Dates: start: 201712, end: 201712

REACTIONS (4)
  - Diplopia [Not Recovered/Not Resolved]
  - Eye movement disorder [Unknown]
  - IVth nerve paralysis [Unknown]
  - Off label use [Unknown]

NARRATIVE: CASE EVENT DATE: 201712
